FAERS Safety Report 6840346-0 (Version None)
Quarter: 2010Q3

REPORT INFORMATION
  Report Type: 
  Country: None (occurrence: None)
  Receive Date: 20100714
  Receipt Date: 20100705
  Transmission Date: 20110219
  Serious: Yes (Other)
  Sender: FDA-Public Use
  Company Number: JP-PFIZER INC-2010083629

PATIENT
  Sex: Male

DRUGS (3)
  1. ZYVOX [Suspect]
     Indication: ENTEROCOCCAL BACTERAEMIA
     Dosage: 1200 MG, 1X/DAY
     Route: 041
     Dates: start: 20100623
  2. ZYVOX [Suspect]
     Indication: ENTEROCOCCAL SEPSIS
  3. PENTCILLIN [Concomitant]
     Indication: PNEUMONIA
     Route: 041

REACTIONS (1)
  - RENAL FAILURE ACUTE [None]
